FAERS Safety Report 15735854 (Version 1)
Quarter: 2018Q4

REPORT INFORMATION
  Report Type: Spontaneous
  Country: US (occurrence: US)
  Receive Date: 20181218
  Receipt Date: 20181218
  Transmission Date: 20190205
  Serious: Yes (Hospitalization)
  Sender: FDA-Public Use
  Company Number: None

PATIENT
  Sex: Female

DRUGS (4)
  1. ALAWAY DRO 0.025%OP [Concomitant]
  2. ENBREL [Suspect]
     Active Substance: ETANERCEPT
     Indication: RHEUMATOID ARTHRITIS
     Dosage: ?          OTHER FREQUENCY:ONCE EVERY WEEK;?
     Route: 058
  3. JUNEL FE TAB 1/20 [Concomitant]
  4. CALCIFEROL DRO 8000/ML [Concomitant]

REACTIONS (4)
  - Drug ineffective [None]
  - Cerebrovascular accident [None]
  - Arthritis [None]
  - Therapy cessation [None]
